FAERS Safety Report 4398468-2 (Version None)
Quarter: 2004Q2

REPORT INFORMATION
  Report Type: 
  Country: None (occurrence: None)
  Receive Date: 20040621
  Receipt Date: 20040123
  Transmission Date: 20050107
  Serious: Yes (Other)
  Sender: FDA-Public Use
  Company Number: USA-2004-0012597

PATIENT
  Age: 40 Year
  Sex: Male

DRUGS (4)
  1. OXYCONTIN [Suspect]
     Indication: HEADACHE
     Dosage: 20 MG, Q12H
  2. ZONEGRAN [Concomitant]
  3. ACTIQ [Concomitant]
  4. VICOPROFEN [Concomitant]

REACTIONS (4)
  - ANXIETY [None]
  - DRUG DEPENDENCE [None]
  - DRUG WITHDRAWAL SYNDROME [None]
  - RESTLESSNESS [None]
